FAERS Safety Report 18976783 (Version 3)
Quarter: 2021Q1

REPORT INFORMATION
  Report Type: Report from Study
  Country: US (occurrence: US)
  Receive Date: 20210306
  Receipt Date: 20210331
  Transmission Date: 20210420
  Serious: No
  Sender: FDA-Public Use
  Company Number: NVSC2021US049596

PATIENT
  Sex: Female

DRUGS (1)
  1. PIQRAY [Suspect]
     Active Substance: ALPELISIB
     Indication: PRODUCT USED FOR UNKNOWN INDICATION
     Dosage: UNK
     Route: 048

REACTIONS (11)
  - Constipation [Unknown]
  - Malaise [Unknown]
  - Rash [Unknown]
  - Somnolence [Unknown]
  - Pyrexia [Unknown]
  - Lethargy [Unknown]
  - Blood glucose increased [Unknown]
  - Fatigue [Unknown]
  - Nausea [Unknown]
  - Fluid intake reduced [Unknown]
  - Decreased appetite [Unknown]
